FAERS Safety Report 5627124-5 (Version None)
Quarter: 2008Q1

REPORT INFORMATION
  Report Type: 
  Country: None (occurrence: None)
  Receive Date: 20080212
  Receipt Date: 20080212
  Transmission Date: 20080703
  Serious: Yes (Hospitalization, Other)
  Sender: FDA-Public Use
  Company Number: None

PATIENT
  Age: 15 Year
  Sex: Female
  Weight: 72.5755 kg

DRUGS (2)
  1. CELEXA [Suspect]
     Indication: DEPRESSION
     Dosage: 4 X 10 MG DAILY PO
     Route: 048
     Dates: start: 20070302, end: 20071010
  2. CELEXA [Suspect]
     Indication: IRRITABLE BOWEL SYNDROME
     Dosage: 4 X 10 MG DAILY PO
     Route: 048
     Dates: start: 20070302, end: 20071010

REACTIONS (3)
  - ALTERED STATE OF CONSCIOUSNESS [None]
  - AMNESIA [None]
  - TREMOR [None]
